APPROVED DRUG PRODUCT: MOXIFLOXACIN HYDROCHLORIDE
Active Ingredient: MOXIFLOXACIN HYDROCHLORIDE
Strength: EQ 0.5% BASE
Dosage Form/Route: SOLUTION/DROPS;OPHTHALMIC
Application: A204079 | Product #001
Applicant: LUPIN LTD
Approved: May 28, 2015 | RLD: No | RS: Yes | Type: RX